FAERS Safety Report 16872413 (Version 1)
Quarter: 2019Q4

REPORT INFORMATION
  Report Type: Spontaneous
  Country: FR (occurrence: FR)
  Receive Date: 20191001
  Receipt Date: 20191001
  Transmission Date: 20200122
  Serious: Yes (Life-Threatening, Hospitalization)
  Sender: FDA-Public Use
  Company Number: FR-MYLANLABS-2019M1091399

PATIENT
  Age: 35 Year
  Sex: Female

DRUGS (7)
  1. SECTRAL [Suspect]
     Active Substance: ACEBUTOLOL HYDROCHLORIDE
     Dosage: 15000 MILLIGRAM, TOTAL
     Route: 048
     Dates: start: 20100423, end: 20100423
  2. PAROXETINE. [Concomitant]
     Active Substance: PAROXETINE
     Indication: DEPRESSION
     Dosage: 20 MILLIGRAM, QD
     Route: 048
     Dates: end: 20100422
  3. LYSANXIA [Concomitant]
     Active Substance: PRAZEPAM
     Indication: DEPRESSION
     Dosage: 1 DOSAGE FORM, QD
     Route: 048
     Dates: start: 20100422
  4. PAROXETINE. [Concomitant]
     Active Substance: PAROXETINE
     Dosage: 700 MILLIGRAM, TOTAL
     Route: 048
     Dates: start: 20100423, end: 20100423
  5. LYSANXIA [Concomitant]
     Active Substance: PRAZEPAM
     Dosage: 16 DOSAGE FORM, TOTAL
     Route: 048
     Dates: start: 20100423, end: 20100423
  6. EPINEPHRINE. [Suspect]
     Active Substance: EPINEPHRINE
     Indication: CIRCULATORY COLLAPSE
     Dosage: UNK
     Route: 065
  7. SECTRAL [Suspect]
     Active Substance: ACEBUTOLOL HYDROCHLORIDE
     Indication: SUPRAVENTRICULAR TACHYCARDIA
     Dosage: 200 MILLIGRAM, QD
     Route: 048
     Dates: end: 20100422

REACTIONS (7)
  - Left ventricular dysfunction [Unknown]
  - Intentional overdose [Unknown]
  - Condition aggravated [Recovering/Resolving]
  - Ejection fraction abnormal [Recovered/Resolved]
  - Stress cardiomyopathy [Recovering/Resolving]
  - Circulatory collapse [Recovering/Resolving]
  - Cardiogenic shock [Recovering/Resolving]

NARRATIVE: CASE EVENT DATE: 20100423
